FAERS Safety Report 17040905 (Version 1)
Quarter: 2019Q4

REPORT INFORMATION
  Report Type: Spontaneous
  Country: CA (occurrence: CA)
  Receive Date: 20191118
  Receipt Date: 20191118
  Transmission Date: 20200122
  Serious: Yes (Other)
  Sender: FDA-Public Use
  Company Number: CA-009507513-1911CAN005528

PATIENT
  Sex: Female

DRUGS (3)
  1. OZURDEX [Suspect]
     Active Substance: DEXAMETHASONE
     Indication: MACULAR OEDEMA
     Dosage: SINGLE-USE APPLICATOR, PRESERVATIVE-FREE
     Route: 065
  2. OZURDEX [Suspect]
     Active Substance: DEXAMETHASONE
     Indication: RETINAL VEIN OCCLUSION
     Dosage: 0.7 MILLIGRAM, 1 EVERY 1 DAY(S), SINGLE-USE APPLICATOR, PRESERVATIVE-FREE
     Route: 031
  3. ZOCOR [Suspect]
     Active Substance: SIMVASTATIN
     Indication: RETINAL VEIN OCCLUSION
     Route: 065

REACTIONS (4)
  - Glaucoma [Recovered/Resolved with Sequelae]
  - Hyphaema [Recovered/Resolved with Sequelae]
  - Vitreous haemorrhage [Recovered/Resolved with Sequelae]
  - Intraocular pressure increased [Recovered/Resolved with Sequelae]
